FAERS Safety Report 9319299 (Version 1)
Quarter: 2013Q2

REPORT INFORMATION
  Report Type: Spontaneous
  Country: EG (occurrence: EG)
  Receive Date: 20130530
  Receipt Date: 20130530
  Transmission Date: 20140414
  Serious: No
  Sender: FDA-Public Use
  Company Number: EG-JNJFOC-20130510709

PATIENT
  Sex: 0

DRUGS (3)
  1. FENTANYL CITRATE [Suspect]
     Indication: GENERAL ANAESTHESIA
     Route: 065
  2. DUROGESIC D-TRANS [Suspect]
     Indication: PROCEDURAL PAIN
     Route: 062
  3. MORPHINE [Suspect]
     Indication: PAIN PROPHYLAXIS
     Dosage: MORPHINE (2 MG BOLUS/10 MINUTE UNTIL PAIN RELIEF
     Route: 042

REACTIONS (5)
  - Hypoxia [Recovered/Resolved]
  - Nausea [Recovered/Resolved]
  - Vomiting [Recovered/Resolved]
  - Wrong technique in drug usage process [Unknown]
  - Off label use [Unknown]
